FAERS Safety Report 15969159 (Version 2)
Quarter: 2019Q1

REPORT INFORMATION
  Report Type: Spontaneous
  Country: US (occurrence: US)
  Receive Date: 20190215
  Receipt Date: 20190319
  Transmission Date: 20190418
  Serious: Yes (Other)
  Sender: FDA-Public Use
  Company Number: US-CELGENEUS-USA-20181000425

PATIENT
  Sex: Female

DRUGS (10)
  1. REVLIMID [Suspect]
     Active Substance: LENALIDOMIDE
     Dosage: 5-10MG
     Route: 048
     Dates: start: 201402
  2. REVLIMID [Suspect]
     Active Substance: LENALIDOMIDE
     Dosage: 25 MILLIGRAM
     Route: 048
     Dates: start: 201502
  3. REVLIMID [Suspect]
     Active Substance: LENALIDOMIDE
     Dosage: 15MILLIGRAM
     Route: 048
     Dates: start: 201812
  4. ZOMETA [Concomitant]
     Active Substance: ZOLEDRONIC ACID
     Indication: PRODUCT USED FOR UNKNOWN INDICATION
     Route: 065
  5. WELCHOL [Concomitant]
     Active Substance: COLESEVELAM HYDROCHLORIDE
     Indication: PRODUCT USED FOR UNKNOWN INDICATION
     Route: 065
  6. REVLIMID [Suspect]
     Active Substance: LENALIDOMIDE
     Indication: PLASMA CELL MYELOMA
     Dosage: 25 MILLIGRAM
     Route: 048
     Dates: start: 201206
  7. REVLIMID [Suspect]
     Active Substance: LENALIDOMIDE
     Dosage: 15MILLIGRAM
     Route: 048
     Dates: start: 20170421
  8. WARFARIN SODIUM. [Concomitant]
     Active Substance: WARFARIN SODIUM
     Indication: PRODUCT USED FOR UNKNOWN INDICATION
     Route: 065
  9. PANTOPRAZOLE SODIUM. [Concomitant]
     Active Substance: PANTOPRAZOLE SODIUM
     Indication: PRODUCT USED FOR UNKNOWN INDICATION
     Route: 065
  10. BACITRACIN. [Concomitant]
     Active Substance: BACITRACIN
     Indication: PRODUCT USED FOR UNKNOWN INDICATION
     Route: 065

REACTIONS (5)
  - Basal cell carcinoma [Unknown]
  - Conjunctivitis bacterial [Unknown]
  - Rash [Unknown]
  - Dry eye [Unknown]
  - Pruritus [Unknown]
